FAERS Safety Report 11792633 (Version 2)
Quarter: 2015Q4

REPORT INFORMATION
  Report Type: Report from Study
  Country: US (occurrence: US)
  Receive Date: 20151202
  Receipt Date: 20151208
  Transmission Date: 20160305
  Serious: Yes (Other)
  Sender: FDA-Public Use
  Company Number: US-PFIZER INC-2015409754

PATIENT
  Age: 72 Year
  Sex: Female

DRUGS (2)
  1. TOVIAZ [Suspect]
     Active Substance: FESOTERODINE FUMARATE
     Indication: BLADDER SPASM
     Dosage: UNK
  2. AMBRISENTAN [Suspect]
     Active Substance: AMBRISENTAN
     Dosage: 10 MG, UNK
     Dates: start: 20110318

REACTIONS (3)
  - Rash [Unknown]
  - Foot deformity [Unknown]
  - Bladder disorder [Unknown]
